FAERS Safety Report 13245071 (Version 2)
Quarter: 2017Q2

REPORT INFORMATION
  Report Type: Spontaneous
  Country: GR (occurrence: GR)
  Receive Date: 20170216
  Receipt Date: 20170406
  Transmission Date: 20170830
  Serious: Yes (Other)
  Sender: FDA-Public Use
  Company Number: GR-009507513-1702GRC007353

PATIENT
  Age: 33 Year
  Sex: Female

DRUGS (3)
  1. TINZAPARIN SODIUM [Suspect]
     Active Substance: TINZAPARIN SODIUM
     Indication: ESSENTIAL THROMBOCYTHAEMIA
     Dosage: UNK
  2. INTRON A [Suspect]
     Active Substance: INTERFERON ALFA-2B
     Indication: ESSENTIAL THROMBOCYTHAEMIA
     Dosage: STRENGTH: 3M IU/0,5M
     Dates: start: 2012
  3. TINZAPARIN SODIUM [Suspect]
     Active Substance: TINZAPARIN SODIUM
     Dosage: UNK
     Dates: start: 2014

REACTIONS (4)
  - Exposure during pregnancy [Recovered/Resolved]
  - General anaesthesia [Unknown]
  - Product use in unapproved indication [Unknown]
  - Caesarean section [Unknown]

NARRATIVE: CASE EVENT DATE: 2013
